FAERS Safety Report 25210950 (Version 1)
Quarter: 2025Q2

REPORT INFORMATION
  Report Type: Spontaneous
  Country: PL (occurrence: PL)
  Receive Date: 20250417
  Receipt Date: 20250417
  Transmission Date: 20250716
  Serious: Yes (Other)
  Sender: PFIZER
  Company Number: PL-SUN PHARMACEUTICAL INDUSTRIES LTD-2025RR-502850

PATIENT
  Age: 84 Year
  Sex: Female

DRUGS (7)
  1. METHYLPREDNISOLONE [Suspect]
     Active Substance: METHYLPREDNISOLONE
     Indication: Pain
     Dosage: 4 MG, WEEKLY (1 TABLET IN THE MORNING)
     Route: 048
  2. ACETAMINOPHEN [Suspect]
     Active Substance: ACETAMINOPHEN
     Indication: Pain
     Route: 065
  3. IBUPROFEN [Suspect]
     Active Substance: IBUPROFEN
     Indication: Pain
     Route: 065
  4. TRAMADOL [Suspect]
     Active Substance: TRAMADOL
     Indication: Pain
     Route: 065
  5. KETOPROFEN [Suspect]
     Active Substance: KETOPROFEN
     Indication: Pain
     Route: 065
  6. METHOTREXATE [Suspect]
     Active Substance: METHOTREXATE
     Indication: Pain
     Dosage: 15 MG, WEEKLY (FREQ:7 D;15 MILLIGRAM, WEEKLY)
     Route: 058
  7. NIMESULIDE [Suspect]
     Active Substance: NIMESULIDE
     Indication: Pain
     Route: 065

REACTIONS (7)
  - Therapeutic product effect incomplete [Unknown]
  - Constipation [Unknown]
  - Abdominal pain upper [Unknown]
  - Dyspepsia [Unknown]
  - Nausea [Unknown]
  - Dizziness [Unknown]
  - Off label use [Unknown]
